FAERS Safety Report 22044128 (Version 3)
Quarter: 2023Q2

REPORT INFORMATION
  Report Type: Report from Study
  Country: US (occurrence: US)
  Receive Date: 20230228
  Receipt Date: 20230619
  Transmission Date: 20230721
  Serious: Yes (Death, Life-Threatening, Hospitalization)
  Sender: FDA-Public Use
  Company Number: US-ARGENX-2022-ARGX-US001366

PATIENT
  Age: 72 Year
  Sex: Female
  Weight: 56 kg

DRUGS (6)
  1. VYVGART [Suspect]
     Active Substance: EFGARTIGIMOD ALFA-FCAB
     Indication: Myasthenia gravis
     Dosage: 10 MG/KG
     Route: 042
     Dates: start: 20220726
  2. IVIGLOB EX [Concomitant]
     Active Substance: HUMAN IMMUNOGLOBULIN G
     Indication: Myasthenia gravis
  3. MESTINON [Concomitant]
     Active Substance: PYRIDOSTIGMINE BROMIDE
     Indication: Myasthenia gravis
  4. PREDNISONE [Concomitant]
     Active Substance: PREDNISONE
     Indication: Myasthenia gravis
  5. UNSPECIFIED INGREDIENT [Concomitant]
     Active Substance: UNSPECIFIED INGREDIENT
     Indication: Product used for unknown indication
  6. Antibiotic eye drops [Concomitant]
     Indication: Product used for unknown indication

REACTIONS (17)
  - Death [Fatal]
  - Mechanical ventilation [Recovered/Resolved]
  - Myasthenia gravis crisis [Not Recovered/Not Resolved]
  - Feeling abnormal [Unknown]
  - Urinary tract infection [Unknown]
  - Skin burning sensation [Recovering/Resolving]
  - Back pain [Recovering/Resolving]
  - Arthralgia [Recovering/Resolving]
  - Muscular weakness [Recovering/Resolving]
  - Influenza like illness [Recovering/Resolving]
  - Muscle spasms [Unknown]
  - Diarrhoea [Not Recovered/Not Resolved]
  - Fluid retention [Not Recovered/Not Resolved]
  - Tension headache [Recovered/Resolved]
  - Myalgia [Recovering/Resolving]
  - Glaucoma [Unknown]
  - Cataract [Unknown]

NARRATIVE: CASE EVENT DATE: 20220726
